FAERS Safety Report 14569959 (Version 1)
Quarter: 2018Q1

REPORT INFORMATION
  Report Type: Spontaneous
  Country: GB (occurrence: GB)
  Receive Date: 20180225
  Receipt Date: 20180225
  Transmission Date: 20180509
  Serious: Yes (Other)
  Sender: FDA-Public Use
  Company Number: GB-DEXPHARM-20180122

PATIENT
  Sex: Female

DRUGS (1)
  1. HYDREX PINK [Suspect]
     Active Substance: ALCOHOL\CHLORHEXIDINE GLUCONATE
     Indication: ANAESTHESIA PROCEDURE

REACTIONS (2)
  - Accidental exposure to product [Recovered/Resolved]
  - Loss of consciousness [Recovered/Resolved]
